FAERS Safety Report 9586097 (Version 2)
Quarter: 2013Q4

REPORT INFORMATION
  Report Type: Spontaneous
  Country: US (occurrence: US)
  Receive Date: 20131003
  Receipt Date: 20131003
  Transmission Date: 20140711
  Serious: Yes (Hospitalization)
  Sender: FDA-Public Use
  Company Number: US-SANOFI-AVENTIS-2013SA077774

PATIENT
  Age: 71 Year
  Sex: Female
  Weight: 58.96 kg

DRUGS (34)
  1. LANTUS [Suspect]
     Indication: TYPE 1 DIABETES MELLITUS
     Dosage: DOSE:15 UNIT(S)
     Route: 058
  2. LANTUS SOLOSTAR [Suspect]
     Dosage: DOSE:18 UNIT(S)
     Route: 065
     Dates: start: 20120502
  3. HUMULIN [Suspect]
     Dosage: 4 UNITS HS. INCREASE AS DIRECTED PER MD UP TO 10 UNITS THREE TIMES A DAY.
     Dates: start: 20120907
  4. HUMALOG [Suspect]
  5. SOLOSTAR [Concomitant]
     Dates: start: 20120502
  6. LYRICA [Concomitant]
     Dates: start: 20121025
  7. NOVOLOG [Concomitant]
     Route: 065
     Dates: start: 20120907
  8. QVAR [Concomitant]
     Dosage: 2 PUFFS 2 TIMES DAILY.
  9. KETOCONAZOLE [Concomitant]
  10. MICONAZOLE [Concomitant]
  11. LIDOCAINE [Concomitant]
     Indication: PAIN
  12. ALL OTHER THERAPEUTIC PRODUCTS [Concomitant]
     Indication: DRY SKIN
  13. METAMUCIL [Concomitant]
     Indication: CONSTIPATION
     Dosage: 2 CAPSULES BY MOUTH ONCE DAILY FOR CONSTIPATION
  14. CALCIUM CITRATE/VITAMIN D NOS [Concomitant]
     Dosage: 2 TABLETS 2 TIMES DAILY
  15. GABAPENTIN [Concomitant]
     Dosage: TAKE 1-2 CAPSULES BY MOUTH 3 TIMES DAILY AS NEEDED.
     Dates: start: 20120313
  16. TRAMADOL [Concomitant]
     Dates: start: 20120305
  17. CYCLOBENZAPRINE [Concomitant]
     Dosage: TAKE 1 TABLET BY MOUTH 3 TIMES DAILY AS NEEDED
     Dates: start: 20120305
  18. TERBINAFINE [Concomitant]
     Dosage: TAKE I TAB BY MOUTH EVERY DAY
     Dates: start: 20120305
  19. ANAPROX [Concomitant]
     Dosage: TAKE 1 TABLET BY MOUTH 2 TIMES DAILY AS NEEDED FOR PAIN (FOR HEADACHE). TAKE WITH FOOD
     Dates: start: 20120214
  20. BACLOFEN [Concomitant]
     Dosage: TAKE 1 TABLET BY MOUTH 3 TIMES DAILY AS NEEDED
     Dates: start: 20120214
  21. MILK OF MAGNESIA [Concomitant]
  22. ACTONEL [Concomitant]
     Dosage: 1 TAB 1 DAY PER WEEK ON EMPTY STOMACH
  23. BUSPIRONE [Concomitant]
     Dosage: 2 TABLETS 2 TIMES DAILY
  24. LIDOCAINE [Concomitant]
  25. OMEPRAZOLE [Concomitant]
  26. LAMOTRIGINE [Concomitant]
  27. MULTIVITAMINS [Concomitant]
  28. POLYETHYLENE GLYCOL [Concomitant]
  29. ACETAMINOPHEN [Concomitant]
  30. OXYBUTYNIN [Concomitant]
     Dosage: TAKE 1 TABLET BY MOUTH EVERY DAY
  31. DOCUSATE SODIUM [Concomitant]
     Dosage: TAKE 1 CAPSULE BY MOUTH 2 TIMES DAILY
     Route: 048
  32. LOVASTATIN [Concomitant]
     Route: 048
  33. SENNA [Concomitant]
     Dosage: TAKE 4 CAPSULES BY MOUTH 2 TIMES DAILY.
     Route: 048
  34. FLUOXETINE [Concomitant]
     Dosage: TAKE 2 CAPSULES BY MOUTH EVERY DAY
     Route: 048

REACTIONS (6)
  - Fall [Not Recovered/Not Resolved]
  - Multiple fractures [Not Recovered/Not Resolved]
  - Concussion [Not Recovered/Not Resolved]
  - Loss of consciousness [Not Recovered/Not Resolved]
  - Blood glucose decreased [Not Recovered/Not Resolved]
  - Glycosylated haemoglobin increased [Unknown]
